FAERS Safety Report 5341004-4 (Version None)
Quarter: 2007Q2

REPORT INFORMATION
  Report Type: 
  Country: None (occurrence: None)
  Receive Date: 20070530
  Receipt Date: 20070312
  Transmission Date: 20071010
  Serious: Yes (Other)
  Sender: FDA-Public Use
  Company Number: A03200702284

PATIENT
  Age: 59 Year
  Sex: Male
  Weight: 88.4514 kg

DRUGS (2)
  1. AMBIEN [Suspect]
     Indication: INSOMNIA
     Dosage: 5 MG PRN - ORAL
     Route: 048
     Dates: start: 19920101
  2. AMLODIPINE+BENAZEPRIL [Concomitant]

REACTIONS (2)
  - FALL [None]
  - FIBULA FRACTURE [None]
